FAERS Safety Report 5895389-0 (Version None)
Quarter: 2008Q3

REPORT INFORMATION
  Report Type: 
  Country: None (occurrence: None)
  Receive Date: 20080923
  Receipt Date: 20080923
  Transmission Date: 20090109
  Serious: Yes (Other)
  Sender: FDA-Public Use
  Company Number: None

PATIENT
  Age: 45 Year
  Sex: Female
  Weight: 77.1115 kg

DRUGS (2)
  1. MACROBID [Suspect]
     Indication: URINARY TRACT INFECTION
     Dosage: 100 MG 2/DAY X 5- /DAYS PO
     Route: 048
     Dates: start: 20080526, end: 20080530
  2. MACROBID [Suspect]
     Indication: URINARY TRACT INFECTION
     Dosage: 100 MG 2/DAY X 5- /DAYS PO
     Route: 048
     Dates: start: 20080702, end: 20080706

REACTIONS (1)
  - ALOPECIA [None]
